FAERS Safety Report 7539011-6 (Version None)
Quarter: 2011Q2

REPORT INFORMATION
  Report Type: 
  Country: None (occurrence: None)
  Receive Date: 20110610
  Receipt Date: 20110602
  Transmission Date: 20111010
  Serious: No
  Sender: FDA-Public Use
  Company Number: US-BAYER-2011-048036

PATIENT
  Age: 35 Year
  Sex: Female
  Weight: 86.168 kg

DRUGS (3)
  1. GLIPIZIDE [Concomitant]
  2. METFORMIN HYDROCHLORIDE [Concomitant]
  3. ULTRAVIST 150 [Suspect]
     Indication: COMPUTERISED TOMOGRAM
     Dosage: 80 ML, ONCE
     Route: 042
     Dates: start: 20110602, end: 20110602

REACTIONS (2)
  - ORAL DISCOMFORT [None]
  - TONGUE PRURITUS [None]
